FAERS Safety Report 6171390-7 (Version None)
Quarter: 2009Q2

REPORT INFORMATION
  Report Type: 
  Country: None (occurrence: None)
  Receive Date: 20090429
  Receipt Date: 20090420
  Transmission Date: 20091009
  Serious: Yes (Other)
  Sender: FDA-Public Use
  Company Number: US-AMGEN-QUU343653

PATIENT
  Sex: Female

DRUGS (1)
  1. ENBREL [Suspect]
     Indication: RHEUMATOID ARTHRITIS
     Route: 058
     Dates: start: 20051001

REACTIONS (6)
  - CORNEAL DISORDER [None]
  - CORNEAL PERFORATION [None]
  - EYE PAIN [None]
  - FEELING ABNORMAL [None]
  - NASAL CONGESTION [None]
  - OROPHARYNGEAL PAIN [None]
